FAERS Safety Report 23395228 (Version 1)
Quarter: 2024Q1

REPORT INFORMATION
  Report Type: Report from Study
  Country: IE (occurrence: IE)
  Receive Date: 20240112
  Receipt Date: 20240112
  Transmission Date: 20240410
  Serious: Yes (Other)
  Sender: FDA-Public Use
  Company Number: IE-ABBVIE-5580516

PATIENT
  Sex: Male

DRUGS (11)
  1. CARBIDOPA\LEVODOPA [Suspect]
     Active Substance: CARBIDOPA\LEVODOPA
     Indication: Parkinson^s disease
     Dosage: 1 CASSETTE?FREQUENCY TEXT: CONTINUOUS
     Route: 050
     Dates: start: 20180406
  2. CARBIDOPA\LEVODOPA [Suspect]
     Active Substance: CARBIDOPA\LEVODOPA
  3. LACTULOSE [Concomitant]
     Active Substance: LACTULOSE
     Indication: Product used for unknown indication
     Route: 050
  4. BENSERAZIDE HYDROCHLORIDE\LEVODOPA [Concomitant]
     Active Substance: BENSERAZIDE HYDROCHLORIDE\LEVODOPA
     Indication: Product used for unknown indication
     Dosage: 50/12.5MG X  2 TABS
     Route: 050
  5. SINEMET [Concomitant]
     Active Substance: CARBIDOPA\LEVODOPA
     Indication: Product used for unknown indication
     Dosage: 50.2 MG?CR
     Route: 050
  6. MIRABEGRON [Concomitant]
     Active Substance: MIRABEGRON
     Indication: Product used for unknown indication
     Route: 050
  7. MOVICOL [Concomitant]
     Active Substance: POLYETHYLENE GLYCOL 3350\POTASSIUM CHLORIDE\SODIUM BICARBONATE\SODIUM CHLORIDE
     Indication: Product used for unknown indication
     Dosage: 13.8 G
     Route: 050
  8. STALEVO [Concomitant]
     Active Substance: CARBIDOPA\ENTACAPONE\LEVODOPA
     Indication: Product used for unknown indication
     Route: 050
  9. APOMORPHINE [Concomitant]
     Active Substance: APOMORPHINE
     Indication: Product used for unknown indication
     Dosage: 0.8 ML?FREQUENCY TEXT: CONTINUOUS
     Route: 050
  10. ROSUVASTATIN [Concomitant]
     Active Substance: ROSUVASTATIN
     Indication: Product used for unknown indication
     Route: 050
  11. RIVOTRIL [Concomitant]
     Active Substance: CLONAZEPAM
     Indication: Product used for unknown indication
     Route: 050

REACTIONS (4)
  - Presyncope [Not Recovered/Not Resolved]
  - Balance disorder [Not Recovered/Not Resolved]
  - Sensation of blood flow [Not Recovered/Not Resolved]
  - On and off phenomenon [Not Recovered/Not Resolved]
